FAERS Safety Report 20115323 (Version 2)
Quarter: 2021Q4

REPORT INFORMATION
  Report Type: Spontaneous
  Country: US (occurrence: US)
  Receive Date: 20211125
  Receipt Date: 20211207
  Transmission Date: 20220303
  Serious: Yes (Other)
  Sender: FDA-Public Use
  Company Number: US-TEVA-2021-US-1980025

PATIENT
  Age: 12 Year
  Sex: Male

DRUGS (5)
  1. OLANZAPINE [Suspect]
     Active Substance: OLANZAPINE
     Indication: Psychotic disorder
     Dosage: 20 MILLIGRAM DAILY;
     Route: 065
  2. CLOZAPINE [Interacting]
     Active Substance: CLOZAPINE
     Indication: Psychotic disorder
     Dosage: 525 MILLIGRAM DAILY;
     Route: 065
  3. FLUVOXAMINE [Interacting]
     Active Substance: FLUVOXAMINE
     Indication: Psychotic disorder
     Dosage: 12.5 MILLIGRAM DAILY; AT BEDTIME
     Route: 065
  4. FLUVOXAMINE [Interacting]
     Active Substance: FLUVOXAMINE
     Indication: Psychotic disorder
     Dosage: 25 MILLIGRAM DAILY;
     Route: 065
  5. FLUVOXAMINE [Interacting]
     Active Substance: FLUVOXAMINE
     Dosage: 12.5 MILLIGRAM DAILY; REDUCED DOSE
     Route: 065

REACTIONS (8)
  - Sedation [Unknown]
  - Constipation [Unknown]
  - Vomiting [Unknown]
  - Enuresis [Unknown]
  - Orthostatic hypotension [Unknown]
  - Fall [Unknown]
  - Drug ineffective [Unknown]
  - Drug interaction [Unknown]
